FAERS Safety Report 9254025 (Version 1)
Quarter: 2013Q1

REPORT INFORMATION
  Report Type: Spontaneous
  Country: US (occurrence: None)
  Receive Date: 20121211
  Receipt Date: 20121211
  Transmission Date: 20140127
  Serious: Yes (Other)
  Sender: FDA-Public Use
  Company Number: 111USA01840

PATIENT
  Sex: 0

DRUGS (2)
  1. ISENTRESS [Suspect]
     Route: 048
     Dates: start: 20111003, end: 20111111
  2. TRUVADA (EMTRICITABINE (+) TENOFOVIR DISOPROXIL FUMARATE) [Concomitant]

REACTIONS (5)
  - Stevens-Johnson syndrome [None]
  - Gastrointestinal tract irritation [None]
  - Tachycardia [None]
  - Dysphagia [None]
  - Adverse drug reaction [None]
